FAERS Safety Report 8907958 (Version 1)
Quarter: 2012Q4

REPORT INFORMATION
  Report Type: 
  Country: US (occurrence: US)
  Receive Date: 20121113
  Receipt Date: 20121113
  Transmission Date: 20130627
  Serious: No
  Sender: FDA-Public Use
  Company Number: US-AMGEN-USASP2012038900

PATIENT
  Age: 58 Year
  Sex: Female
  Weight: 70.3 kg

DRUGS (4)
  1. ENBREL [Suspect]
     Indication: PRODUCT USED FOR UNKNOWN INDICATION
     Dosage: 50 mg, qwk
     Route: 058
  2. ZYRTEC [Concomitant]
     Dosage: 10 mg, UNK
  3. ALBUTEROL                          /00139501/ [Concomitant]
     Dosage: 90 mug, UNK
  4. ADVAIR [Concomitant]
     Dosage: UNK

REACTIONS (1)
  - Contusion [Unknown]
